FAERS Safety Report 7575161-6 (Version None)
Quarter: 2011Q2

REPORT INFORMATION
  Report Type: 
  Country: None (occurrence: None)
  Receive Date: 20110627
  Receipt Date: 20110615
  Transmission Date: 20111010
  Serious: Yes (Other)
  Sender: FDA-Public Use
  Company Number: US-ENDO PHARMACEUTICALS INC.-SPLN20110067

PATIENT
  Sex: Male

DRUGS (3)
  1. SUPPRELIN LA [Suspect]
     Indication: BONE DEVELOPMENT ABNORMAL
     Route: 058
     Dates: start: 20100901
  2. GROWTH HORMONE INJECTION [Concomitant]
     Indication: GROWTH HORMONE DEFICIENCY
  3. GROWTH HORMONE INJECTION [Concomitant]
     Indication: BONE DEVELOPMENT ABNORMAL
     Dosage: UNK
     Route: 065
     Dates: end: 20110501

REACTIONS (2)
  - HEADACHE [None]
  - INTRACRANIAL PRESSURE INCREASED [None]
